FAERS Safety Report 7668363-1 (Version None)
Quarter: 2011Q3

REPORT INFORMATION
  Report Type: 
  Country: None (occurrence: None)
  Receive Date: 20110808
  Receipt Date: 20110802
  Transmission Date: 20111222
  Serious: Yes (Hospitalization, Other)
  Sender: FDA-Public Use
  Company Number: JP-SANOFI-AVENTIS-2011SA035132

PATIENT
  Age: 61 Year
  Sex: Male
  Weight: 79 kg

DRUGS (22)
  1. OXALIPLATIN [Suspect]
     Route: 042
     Dates: start: 20100712, end: 20100712
  2. OXALIPLATIN [Suspect]
     Route: 042
     Dates: start: 20100823, end: 20100823
  3. OXALIPLATIN [Suspect]
     Route: 042
     Dates: start: 20100913, end: 20100913
  4. DEXAMETHASONE SODIUM PHOSPHATE [Concomitant]
     Indication: PREMEDICATION
     Dosage: ROUTE: DRIP.
     Dates: start: 20100511, end: 20100913
  5. OXALIPLATIN [Suspect]
     Route: 042
     Dates: start: 20100621, end: 20100621
  6. LOPERAMIDE HCL [Concomitant]
     Route: 048
     Dates: start: 20100531, end: 20100712
  7. CAPECITABINE [Suspect]
     Indication: RECTAL CANCER
     Route: 048
     Dates: start: 20100531, end: 20100614
  8. CAPECITABINE [Suspect]
     Route: 048
     Dates: start: 20100913, end: 20100920
  9. VERAPAMIL HCL [Concomitant]
     Indication: ARRHYTHMIA
     Route: 048
     Dates: end: 20101026
  10. CAPECITABINE [Suspect]
     Route: 048
     Dates: start: 20100621, end: 20100704
  11. CAPECITABINE [Suspect]
     Route: 048
     Dates: start: 20100712, end: 20100725
  12. CAPECITABINE [Suspect]
     Route: 048
     Dates: start: 20100823, end: 20100905
  13. ALOXI [Concomitant]
     Indication: PREMEDICATION
     Dosage: ROUTE: DRIP.
     Dates: start: 20100913, end: 20100913
  14. CIBENOL [Concomitant]
     Indication: ARRHYTHMIA
     Route: 048
     Dates: end: 20101026
  15. WARFARIN SODIUM [Concomitant]
     Route: 048
     Dates: end: 20101026
  16. OXALIPLATIN [Suspect]
     Route: 042
     Dates: start: 20100531, end: 20100531
  17. UREPEARL [Concomitant]
     Indication: PROPHYLAXIS
     Dates: start: 20100512, end: 20100512
  18. OXALIPLATIN [Suspect]
     Indication: RECTAL CANCER
     Route: 042
     Dates: start: 20100511, end: 20100511
  19. KYTRIL [Concomitant]
     Indication: PREMEDICATION
     Dosage: ROUTE: DRIP.
     Dates: start: 20100511, end: 20100823
  20. CARVEDILOL [Concomitant]
     Route: 048
     Dates: end: 20101026
  21. PYDOXAL [Concomitant]
     Indication: PROPHYLAXIS
     Route: 048
     Dates: start: 20100511, end: 20100920
  22. CAPECITABINE [Suspect]
     Route: 048
     Dates: start: 20100511, end: 20100524

REACTIONS (4)
  - PLATELET COUNT DECREASED [None]
  - NEPHROTIC SYNDROME [None]
  - ASCITES [None]
  - NEUROPATHY PERIPHERAL [None]
